FAERS Safety Report 7517134-5 (Version None)
Quarter: 2011Q2

REPORT INFORMATION
  Report Type: 
  Country: None (occurrence: None)
  Receive Date: 20110601
  Receipt Date: 20110518
  Transmission Date: 20111010
  Serious: Yes (Other)
  Sender: FDA-Public Use
  Company Number: PHHY2010BR83260

PATIENT
  Age: 15 Year
  Sex: Female

DRUGS (4)
  1. DESONOL [Concomitant]
  2. FORMOTEROL FUMARATE [Concomitant]
     Indication: RHINITIS
  3. ELIDEL [Suspect]
     Indication: DERMATITIS ATOPIC
  4. FORMOTEROL FUMARATE [Concomitant]
     Indication: ASTHMA

REACTIONS (4)
  - SKIN EXFOLIATION [None]
  - DERMATITIS ATOPIC [None]
  - ERYTHEMA [None]
  - OPEN WOUND [None]
